FAERS Safety Report 24694549 (Version 1)
Quarter: 2024Q4

REPORT INFORMATION
  Report Type: Spontaneous
  Country: CN (occurrence: CN)
  Receive Date: 20241204
  Receipt Date: 20241204
  Transmission Date: 20250115
  Serious: Yes (Other)
  Sender: JOHNSON AND JOHNSON
  Company Number: CN-KENVUE-20241106570

PATIENT
  Age: 2 Month
  Sex: Male

DRUGS (1)
  1. TYLENOL FOR CHILDREN PLUS ADULTS [Suspect]
     Active Substance: ACETAMINOPHEN
     Indication: Pyrexia
     Dosage: 0.5 MILLILITER, ONCE A DAY
     Dates: start: 20241105, end: 20241105

REACTIONS (4)
  - Rash erythematous [Recovering/Resolving]
  - Naevus flammeus [Recovering/Resolving]
  - Macule [Recovering/Resolving]
  - Papule [Recovering/Resolving]

NARRATIVE: CASE EVENT DATE: 20241105
